FAERS Safety Report 6932092-X (Version None)
Quarter: 2010Q3

REPORT INFORMATION
  Report Type: 
  Country: None (occurrence: None)
  Receive Date: 20100819
  Receipt Date: 20100806
  Transmission Date: 20110219
  Serious: Yes (Hospitalization)
  Sender: FDA-Public Use
  Company Number: A0862621A

PATIENT
  Age: 42 Year
  Sex: Female
  Weight: 70.9 kg

DRUGS (7)
  1. AVANDIA [Suspect]
     Dosage: 8MG PER DAY
     Route: 048
     Dates: start: 19970101, end: 20030301
  2. LANTUS [Concomitant]
  3. LOTREL [Concomitant]
  4. AMARYL [Concomitant]
  5. EFFEXOR [Concomitant]
  6. GLUCOPHAGE XR [Concomitant]
  7. PREVACID [Concomitant]

REACTIONS (5)
  - AUTOIMMUNE HEPATITIS [None]
  - HEPATIC CIRRHOSIS [None]
  - JAUNDICE [None]
  - LIVER DISORDER [None]
  - LIVER FUNCTION TEST ABNORMAL [None]
